FAERS Safety Report 6072191-0 (Version None)
Quarter: 2009Q1

REPORT INFORMATION
  Report Type: 
  Country: None (occurrence: None)
  Receive Date: 20090206
  Receipt Date: 20090206
  Transmission Date: 20090719
  Serious: Yes (Hospitalization)
  Sender: FDA-Public Use
  Company Number: None

PATIENT
  Sex: Female
  Weight: 68.9467 kg

DRUGS (2)
  1. VINORELBINE TARTRATE [Suspect]
     Indication: PANCREATIC CARCINOMA METASTATIC
     Dosage: 20MG/M2 D1,8,15 Q 28 D IV
     Route: 042
     Dates: start: 20090109, end: 20090123
  2. LAPATINIB 1500MG [Suspect]
     Dosage: 1500MG DAILY P.O.
     Route: 048
     Dates: start: 20090109, end: 20090129

REACTIONS (6)
  - ASCITES [None]
  - CONSTIPATION [None]
  - HYPOPHAGIA [None]
  - INTESTINAL OBSTRUCTION [None]
  - NAUSEA [None]
  - VOMITING [None]
